FAERS Safety Report 14449489 (Version 1)
Quarter: 2018Q1

REPORT INFORMATION
  Report Type: Spontaneous
  Country: FR (occurrence: FR)
  Receive Date: 20180127
  Receipt Date: 20180127
  Transmission Date: 20180509
  Serious: Yes (Hospitalization)
  Sender: FDA-Public Use
  Company Number: FR-ROCHE-2020978

PATIENT
  Age: 16 Year
  Sex: Male

DRUGS (20)
  1. PRIMAXIN IV [Concomitant]
     Active Substance: CILASTATIN SODIUM\IMIPENEM
  2. MENATETRENONE [Concomitant]
     Active Substance: MENATETRENONE
  3. AMOXICILLIN/CLAVULANIC ACID [Concomitant]
     Active Substance: AMOXICILLIN\CLAVULANIC ACID
  4. ROACTEMRA [Suspect]
     Active Substance: TOCILIZUMAB
     Indication: CYTOKINE RELEASE SYNDROME
     Dosage: DOSAGE IS UNCERTAIN.
     Route: 042
     Dates: start: 20170126
  5. LINEZOLID. [Concomitant]
     Active Substance: LINEZOLID
  6. TEICOPLANIN [Concomitant]
     Active Substance: TEICOPLANIN
  7. ERTAPENEM. [Concomitant]
     Active Substance: ERTAPENEM SODIUM
  8. CIPROFLOXACIN. [Concomitant]
     Active Substance: CIPROFLOXACIN
  9. CIPROFLOXACIN. [Concomitant]
     Active Substance: CIPROFLOXACIN
  10. NEFOPAM [Concomitant]
     Active Substance: NEFOPAM
  11. TISAGENLECLEUCEL. [Suspect]
     Active Substance: TISAGENLECLEUCEL
     Indication: PRODUCT USED FOR UNKNOWN INDICATION
     Dosage: DOSAGE IS UNCERTAIN.
     Route: 041
     Dates: start: 20170124
  12. PIPERACILLIN TAZOBACTAM KABI [Concomitant]
     Active Substance: PIPERACILLIN SODIUM\TAZOBACTAM SODIUM
  13. CYCLOPHOSPHAMIDE. [Concomitant]
     Active Substance: CYCLOPHOSPHAMIDE
     Route: 065
     Dates: start: 20170115, end: 20170116
  14. VORICONAZOLE. [Concomitant]
     Active Substance: VORICONAZOLE
  15. AMIKACIN [Concomitant]
     Active Substance: AMIKACIN
  16. CILASTATIN [Concomitant]
     Active Substance: CILASTATIN
  17. ECONAZOLE [Concomitant]
     Active Substance: ECONAZOLE
  18. METRONIDAZOLE. [Concomitant]
     Active Substance: METRONIDAZOLE
  19. FLUDARABINE [Concomitant]
     Active Substance: FLUDARABINE PHOSPHATE
     Route: 065
     Dates: start: 20170115, end: 20170118
  20. IMIPENEM [Concomitant]
     Active Substance: IMIPENEM

REACTIONS (6)
  - Encephalitis [Recovering/Resolving]
  - Platelet count decreased [Unknown]
  - Pancytopenia [Not Recovered/Not Resolved]
  - Cerebral haemorrhage [Recovered/Resolved]
  - Roseolovirus test positive [Recovered/Resolved]
  - Toxoplasmosis [Recovered/Resolved]

NARRATIVE: CASE EVENT DATE: 20170124
